FAERS Safety Report 5809624-8 (Version None)
Quarter: 2008Q3

REPORT INFORMATION
  Report Type: 
  Country: None (occurrence: None)
  Receive Date: 20080708
  Receipt Date: 20080213
  Transmission Date: 20090109
  Serious: Yes (Death, Hospitalization)
  Sender: FDA-Public Use
  Company Number: M-06-0767

PATIENT
  Age: 74 Year
  Sex: Male

DRUGS (1)
  1. AMIODARONE HCL [Suspect]
     Indication: ATRIAL FIBRILLATION
     Dosage: 400 MG, BID, PO, BEGINNING ON 01/2003, TAPERED TO 100 MG, QD, PO, DISCONTINUED ON 03/2004
     Route: 048
     Dates: start: 20030101, end: 20040401

REACTIONS (1)
  - PULMONARY TOXICITY [None]
